FAERS Safety Report 17885410 (Version 2)
Quarter: 2020Q2

REPORT INFORMATION
  Report Type: Report from Study
  Country: GR (occurrence: GR)
  Receive Date: 20200611
  Receipt Date: 20200619
  Transmission Date: 20200714
  Serious: Yes (Death)
  Sender: FDA-Public Use
  Company Number: GR-PFIZER INC-2020226323

PATIENT
  Age: 59 Year
  Sex: Male
  Weight: 67 kg

DRUGS (6)
  1. ETOPOSIDE. [Suspect]
     Active Substance: ETOPOSIDE
     Indication: SMALL CELL LUNG CANCER
     Dosage: 180 MG, EVERY 3 WEEKS (ONCE IN 21 DAYS)
     Route: 042
     Dates: start: 20200225, end: 20200522
  2. AVELUMAB [Suspect]
     Active Substance: AVELUMAB
     Indication: SMALL CELL LUNG CANCER
     Dosage: 800 MG, CYCLIC (ONCE EVERY 14 DAYS)
     Route: 042
     Dates: start: 20200408, end: 20200520
  3. APOTEL [Concomitant]
     Active Substance: ACETAMINOPHEN
     Indication: PREMEDICATION
     Dosage: 1 G (ONCE IN 14 DAYS)
     Route: 048
     Dates: start: 20200408, end: 20200520
  4. AERIUS (DESLORATADINE) [Concomitant]
     Active Substance: DESLORATADINE
     Indication: PREMEDICATION
     Dosage: 5 MG (ONCE IN 14 DAYS)
     Route: 048
     Dates: start: 20200408, end: 20200520
  5. CARBOPLATIN. [Suspect]
     Active Substance: CARBOPLATIN
     Indication: SMALL CELL LUNG CANCER
     Dosage: 600 MG, EVERY 3 WEEKS (ONCE IN 21 DAYS)
     Route: 042
     Dates: start: 20200225, end: 20200520
  6. METHYLPREDNISOLONE. [Suspect]
     Active Substance: METHYLPREDNISOLONE
     Indication: ARTHRALGIA
     Dosage: 70 MG, DAILY (1MG/ KG)
     Route: 048
     Dates: start: 20200525, end: 20200531

REACTIONS (1)
  - Cardiac arrest [Fatal]

NARRATIVE: CASE EVENT DATE: 20200531
